FAERS Safety Report 6921419-0 (Version None)
Quarter: 2010Q3

REPORT INFORMATION
  Report Type: 
  Country: None (occurrence: None)
  Receive Date: 20100812
  Receipt Date: 20100729
  Transmission Date: 20110219
  Serious: Yes (Hospitalization, Other)
  Sender: FDA-Public Use
  Company Number: US-ELI_LILLY_AND_COMPANY-US201008000351

PATIENT
  Sex: Male

DRUGS (9)
  1. ZYPREXA [Suspect]
     Indication: MAJOR DEPRESSION
     Dosage: 15 MG, UNK
  2. ZYPREXA [Suspect]
     Dosage: 10 MG, UNK
  3. ZYPREXA [Suspect]
     Dosage: 7.5 MG, UNK
  4. ZYPREXA [Suspect]
     Dosage: 5 MG, UNK
  5. ZYPREXA [Suspect]
     Dosage: 20 MG, UNK
  6. ZOLOFT [Concomitant]
     Dosage: 150 MG, UNK
  7. ZOLOFT [Concomitant]
     Dosage: 200 MG, UNK
  8. LIPITOR [Concomitant]
  9. ARIPIPRAZOLE [Concomitant]

REACTIONS (9)
  - DEPRESSION [None]
  - HALLUCINATION [None]
  - LIPIDS INCREASED [None]
  - MYOCARDIAL INFARCTION [None]
  - PSYCHOTIC DISORDER [None]
  - SLUGGISHNESS [None]
  - SUICIDAL BEHAVIOUR [None]
  - SUICIDE ATTEMPT [None]
  - WEIGHT INCREASED [None]
